FAERS Safety Report 6340260-3 (Version None)
Quarter: 2009Q3

REPORT INFORMATION
  Report Type: 
  Country: None (occurrence: None)
  Receive Date: 20090902
  Receipt Date: 20090817
  Transmission Date: 20100115
  Serious: Yes (Other)
  Sender: FDA-Public Use
  Company Number: PHHY2009TW34521

PATIENT
  Age: 43 Year
  Sex: Male

DRUGS (2)
  1. VISUDYNE [Suspect]
     Indication: CHORIORETINOPATHY
     Dosage: 3 MG/M^2 ONCE IV
     Route: 042
  2. FLUORESCEIN [Concomitant]

REACTIONS (3)
  - BEHCET'S SYNDROME [None]
  - CAPILLARY DISORDER [None]
  - VISUAL ACUITY REDUCED [None]
